FAERS Safety Report 5647626-5 (Version None)
Quarter: 2008Q1

REPORT INFORMATION
  Report Type: 
  Country: None (occurrence: None)
  Receive Date: 20080303
  Receipt Date: 20080225
  Transmission Date: 20080703
  Serious: Yes (Other)
  Sender: FDA-Public Use
  Company Number: US-PFIZER INC-2004086400

PATIENT
  Sex: Female
  Weight: 54.4 kg

DRUGS (3)
  1. LIPITOR [Suspect]
     Indication: BLOOD CHOLESTEROL
     Route: 048
     Dates: start: 19870101, end: 20040801
  2. VITAMINS [Concomitant]
     Route: 048
  3. SYNTHROID [Concomitant]
     Route: 048

REACTIONS (7)
  - BLOOD CHOLESTEROL INCREASED [None]
  - EYE DISORDER [None]
  - FACE OEDEMA [None]
  - FEELING ABNORMAL [None]
  - GAIT DISTURBANCE [None]
  - MEMORY IMPAIRMENT [None]
  - MUSCULAR WEAKNESS [None]
